FAERS Safety Report 4624228-0 (Version None)
Quarter: 2005Q1

REPORT INFORMATION
  Report Type: 
  Country: None (occurrence: None)
  Receive Date: 20050330
  Receipt Date: 20050330
  Transmission Date: 20050727
  Serious: No
  Sender: FDA-Public Use
  Company Number: None

PATIENT
  Age: 75 Year
  Sex: Female
  Weight: 80 kg

DRUGS (2)
  1. RETEVASE [Suspect]
     Dosage: 0.5 UNIT / HR X 2 HRS
     Dates: start: 20041230, end: 20051111
  2. HEPARIN [Suspect]
     Dosage: 400 UNITS / HR

REACTIONS (7)
  - DYSPNOEA [None]
  - GENERAL PHYSICAL HEALTH DETERIORATION [None]
  - HAEMATOCRIT DECREASED [None]
  - LEG AMPUTATION [None]
  - PERIPHERAL ISCHAEMIA [None]
  - RETROPERITONEAL HAEMORRHAGE [None]
  - WHEEZING [None]
